FAERS Safety Report 23347081 (Version 1)
Quarter: 2023Q4

REPORT INFORMATION
  Report Type: Spontaneous
  Country: UA (occurrence: UA)
  Receive Date: 20231228
  Receipt Date: 20231228
  Transmission Date: 20240109
  Serious: Yes (Other)
  Sender: FDA-Public Use
  Company Number: UA-AMGEN-UKRSP2023226370

PATIENT

DRUGS (4)
  1. XGEVA [Suspect]
     Active Substance: DENOSUMAB
     Indication: Bone giant cell tumour
     Dosage: 120 MILLIGRAM, Q4WK
     Route: 058
  2. XGEVA [Suspect]
     Active Substance: DENOSUMAB
     Dosage: 120 MILLIGRAM, Q3MO
     Route: 058
  3. CALCIUM [Concomitant]
     Active Substance: CALCIUM
     Dosage: UNK (UP TO 1000 MG)
     Route: 065
  4. VITAMIN D [Concomitant]
     Active Substance: VITAMIN D NOS
     Dosage: UNK (UP TO 400 MG) DAILY
     Route: 065

REACTIONS (8)
  - Bone giant cell tumour malignant [Unknown]
  - Seizure [Unknown]
  - Procedural haemorrhage [Unknown]
  - Post procedural complication [Unknown]
  - Influenza like illness [Unknown]
  - Rash [Unknown]
  - Nausea [Unknown]
  - Hypocalcaemia [Unknown]
